FAERS Safety Report 16082778 (Version 1)
Quarter: 2019Q1

REPORT INFORMATION
  Report Type: Report from Study
  Country: None (occurrence: IT)
  Receive Date: 20190318
  Receipt Date: 20190318
  Transmission Date: 20190418
  Serious: Yes (Hospitalization)
  Sender: FDA-Public Use
  Company Number: IT-ABBVIE-19S-083-2707399-00

PATIENT
  Age: 65 Year
  Sex: Male

DRUGS (1)
  1. DUODOPA [Suspect]
     Active Substance: CARBIDOPA\LEVODOPA
     Indication: PARKINSON^S DISEASE
     Route: 050
     Dates: start: 20190218

REACTIONS (3)
  - Lipase abnormal [Not Recovered/Not Resolved]
  - Pancreatitis [Not Recovered/Not Resolved]
  - Amylase abnormal [Not Recovered/Not Resolved]

NARRATIVE: CASE EVENT DATE: 20190314
